FAERS Safety Report 23576262 (Version 9)
Quarter: 2025Q2

REPORT INFORMATION
  Report Type: Report from Study
  Country: BR (occurrence: BR)
  Receive Date: 20240228
  Receipt Date: 20250523
  Transmission Date: 20250717
  Serious: Yes (Hospitalization, Other)
  Sender: ELI LILLY AND COMPANY
  Company Number: BR-ELI_LILLY_AND_COMPANY-BR202401016202

PATIENT
  Age: 80 Year
  Sex: Female

DRUGS (15)
  1. FORTEO [Suspect]
     Active Substance: TERIPARATIDE
     Indication: Osteoporosis
     Dosage: 20 UG, DAILY
     Route: 058
     Dates: start: 202312
  2. FORTEO [Suspect]
     Active Substance: TERIPARATIDE
     Indication: Osteoporosis
     Dosage: 20 UG, DAILY
     Route: 058
     Dates: start: 202312
  3. FORTEO [Suspect]
     Active Substance: TERIPARATIDE
     Indication: Osteoporosis
     Dosage: 20 UG, DAILY
     Route: 058
     Dates: start: 202312
  4. FORTEO [Suspect]
     Active Substance: TERIPARATIDE
     Indication: Osteoporosis
     Dosage: 20 UG, DAILY
     Route: 058
     Dates: start: 202312
  5. FORTEO [Suspect]
     Active Substance: TERIPARATIDE
     Dosage: 20 UG, DAILY
     Route: 058
     Dates: start: 20240118, end: 20241127
  6. FORTEO [Suspect]
     Active Substance: TERIPARATIDE
     Dosage: 20 UG, DAILY
     Route: 058
     Dates: start: 20240118, end: 20241127
  7. FORTEO [Suspect]
     Active Substance: TERIPARATIDE
     Dosage: 20 UG, DAILY
     Route: 058
     Dates: start: 20240118, end: 20241127
  8. FORTEO [Suspect]
     Active Substance: TERIPARATIDE
     Dosage: 20 UG, DAILY
     Route: 058
     Dates: start: 20241128
  9. FORTEO [Suspect]
     Active Substance: TERIPARATIDE
     Dosage: 20 UG, DAILY
     Route: 058
     Dates: start: 20241128
  10. FORTEO [Suspect]
     Active Substance: TERIPARATIDE
     Dosage: 20 UG, DAILY
     Route: 058
     Dates: start: 20241128
  11. FORTEO [Suspect]
     Active Substance: TERIPARATIDE
     Route: 065
  12. FORTEO [Suspect]
     Active Substance: TERIPARATIDE
     Route: 065
  13. FORTEO [Suspect]
     Active Substance: TERIPARATIDE
     Route: 065
  14. FORTEO [Suspect]
     Active Substance: TERIPARATIDE
     Route: 065
  15. CYANOCOBALAMIN\DEXAMETHASONE\PYRIDOXINE\THIAMINE [Suspect]
     Active Substance: CYANOCOBALAMIN\DEXAMETHASONE\PYRIDOXINE\THIAMINE
     Indication: Product used for unknown indication
     Route: 030
     Dates: start: 20240213

REACTIONS (16)
  - Constipation [Unknown]
  - Pain in extremity [Recovered/Resolved]
  - Peripheral swelling [Not Recovered/Not Resolved]
  - Paraesthesia [Not Recovered/Not Resolved]
  - Tremor [Unknown]
  - Limb discomfort [Unknown]
  - Hypertension [Unknown]
  - Muscular weakness [Unknown]
  - Mobility decreased [Unknown]
  - Abdominal distension [Unknown]
  - Dyspnoea [Unknown]
  - Anxiety [Unknown]
  - Pain in extremity [Unknown]
  - Joint noise [Unknown]
  - Product dose omission issue [Unknown]
  - Drug ineffective [Unknown]
